FAERS Safety Report 17990890 (Version 1)
Quarter: 2020Q3

REPORT INFORMATION
  Report Type: Spontaneous
  Country: US (occurrence: US)
  Receive Date: 20200707
  Receipt Date: 20200707
  Transmission Date: 20201103
  Serious: No
  Sender: FDA-Public Use
  Company Number: US-JNJFOC-20200704165

PATIENT
  Sex: Male
  Weight: 79.45 kg

DRUGS (1)
  1. MENS ROGAINE EXTRA STRENGTH [Suspect]
     Active Substance: MINOXIDIL
     Indication: ALOPECIA
     Dosage: HALF A CAPFUL?THE DRUG WAS LAST ADMINISTERED ON 01?JUN?2020.
     Route: 061
     Dates: start: 20190601

REACTIONS (2)
  - Application site erythema [Recovering/Resolving]
  - Application site irritation [Recovered/Resolved]

NARRATIVE: CASE EVENT DATE: 2019
